FAERS Safety Report 5241333-9 (Version None)
Quarter: 2007Q1

REPORT INFORMATION
  Report Type: 
  Country: None (occurrence: None)
  Receive Date: 20070212
  Receipt Date: 20070205
  Transmission Date: 20070707
  Serious: Yes (Other)
  Sender: FDA-Public Use
  Company Number: 2007306084

PATIENT
  Sex: Female

DRUGS (1)
  1. BENADRYL [Suspect]
     Indication: URTICARIA
     Dosage: 1 TABLET Q4 HOURS SAT, 1 TAB ONCE SUN (25MG); ORAL
     Route: 048

REACTIONS (4)
  - EXPIRED DRUG ADMINISTERED [None]
  - HYPERSENSITIVITY [None]
  - NO THERAPEUTIC RESPONSE [None]
  - PHARYNGEAL OEDEMA [None]
